FAERS Safety Report 4522622-X (Version None)
Quarter: 2004Q4

REPORT INFORMATION
  Report Type: 
  Country: None (occurrence: None)
  Receive Date: 20041207
  Receipt Date: 20041119
  Transmission Date: 20050328
  Serious: Yes (Hospitalization)
  Sender: FDA-Public Use
  Company Number: US_0411108584

PATIENT
  Age: 42 Year
  Sex: Female

DRUGS (1)
  1. OLANZAPINE [Suspect]
     Dosage: 80 MG OTHER
     Route: 050

REACTIONS (5)
  - ALCOHOL USE [None]
  - BLOOD ETHANOL INCREASED [None]
  - DRUG TOXICITY [None]
  - HYPOTENSION [None]
  - LOSS OF CONSCIOUSNESS [None]
